FAERS Safety Report 15279708 (Version 1)
Quarter: 2018Q3

REPORT INFORMATION
  Report Type: Spontaneous
  Country: US (occurrence: US)
  Receive Date: 20180730
  Receipt Date: 20180730
  Transmission Date: 20181010
  Serious: Yes (Other)
  Sender: FDA-Public Use
  Company Number: None

PATIENT
  Age: 81 Year
  Sex: Female
  Weight: 73.35 kg

DRUGS (1)
  1. TYMLOS [Suspect]
     Active Substance: ABALOPARATIDE
     Indication: OSTEOPOROSIS PROPHYLAXIS
     Route: 058
     Dates: start: 20180707, end: 20180721

REACTIONS (5)
  - Insomnia [None]
  - Joint swelling [None]
  - Arthralgia [None]
  - Peripheral swelling [None]
  - Skin sensitisation [None]

NARRATIVE: CASE EVENT DATE: 20180721
